FAERS Safety Report 18692790 (Version 1)
Quarter: 2021Q1

REPORT INFORMATION
  Report Type: Spontaneous
  Country: FR (occurrence: FR)
  Receive Date: 20210104
  Receipt Date: 20210104
  Transmission Date: 20210419
  Serious: Yes (Hospitalization)
  Sender: FDA-Public Use
  Company Number: FR-ADVANZ PHARMA-E2B_00008071

PATIENT

DRUGS (4)
  1. VIMPAT [Suspect]
     Active Substance: LACOSAMIDE
     Indication: EPILEPSY
     Dosage: 300 MG, QD
     Route: 048
  2. URBANYL [Suspect]
     Active Substance: CLOBAZAM
     Dosage: 5 MG, QD
     Route: 048
  3. ZONISAMIDE. [Suspect]
     Active Substance: ZONISAMIDE
     Indication: EPILEPSY
     Dosage: 300 MG, QD
     Route: 048
  4. URBANYL [Suspect]
     Active Substance: CLOBAZAM
     Indication: EPILEPSY
     Dosage: 10 MG, QD
     Route: 048

REACTIONS (2)
  - Exposure during pregnancy [Recovered/Resolved]
  - Threatened labour [Recovered/Resolved]

NARRATIVE: CASE EVENT DATE: 2015
